FAERS Safety Report 12373916 (Version 2)
Quarter: 2016Q2

REPORT INFORMATION
  Report Type: Spontaneous
  Country: JP (occurrence: JP)
  Receive Date: 20160517
  Receipt Date: 20160617
  Transmission Date: 20160815
  Serious: Yes (Other)
  Sender: FDA-Public Use
  Company Number: JP-AMGEN-JPNSP2016061209

PATIENT
  Sex: Female

DRUGS (8)
  1. 5-FU                               /00098801/ [Suspect]
     Active Substance: FLUOROURACIL
     Indication: COLON CANCER
     Dosage: UNK
     Route: 041
     Dates: start: 201511
  2. VECTIBIX [Suspect]
     Active Substance: PANITUMUMAB
     Indication: COLON CANCER
     Dosage: UNK
     Route: 041
     Dates: start: 201511
  3. CALCIUM LEVOFOLINATE [Concomitant]
     Active Substance: LEVOLEUCOVORIN CALCIUM
     Dosage: UNK, Q4WEEKS
     Route: 041
     Dates: start: 201602
  4. VECTIBIX [Suspect]
     Active Substance: PANITUMUMAB
     Dosage: UNK, Q4WEEKS
     Route: 041
     Dates: start: 201602
  5. CAMPTO [Concomitant]
     Active Substance: IRINOTECAN
     Dosage: UNK, Q4WEEKS
     Route: 041
     Dates: start: 201602
  6. CALCIUM LEVOFOLINATE [Concomitant]
     Active Substance: LEVOLEUCOVORIN CALCIUM
     Indication: COLON CANCER
     Dosage: UNK
     Route: 041
     Dates: start: 201511
  7. 5-FU                               /00098801/ [Suspect]
     Active Substance: FLUOROURACIL
     Dosage: UNK UNK, Q4WK
     Route: 042
     Dates: start: 201602
  8. CAMPTO [Concomitant]
     Active Substance: IRINOTECAN
     Indication: COLON CANCER
     Dosage: UNK
     Route: 041
     Dates: start: 201511

REACTIONS (1)
  - Leukopenia [Recovering/Resolving]

NARRATIVE: CASE EVENT DATE: 201601
